FAERS Safety Report 23340761 (Version 1)
Quarter: 2023Q4

REPORT INFORMATION
  Report Type: Spontaneous
  Country: US (occurrence: US)
  Receive Date: 20231227
  Receipt Date: 20231227
  Transmission Date: 20240110
  Serious: Yes (Other)
  Sender: FDA-Public Use
  Company Number: US-SA-SAC20231225000290

PATIENT
  Sex: Female

DRUGS (1)
  1. RIFAMPIN [Suspect]
     Active Substance: RIFAMPIN
     Dosage: UNK
     Route: 065

REACTIONS (7)
  - Bronchiectasis [Unknown]
  - Mycobacterium avium complex infection [Unknown]
  - Pneumonia [Unknown]
  - Hyperlipidaemia [Unknown]
  - Drug intolerance [Unknown]
  - Pruritus [Unknown]
  - Chills [Unknown]
